FAERS Safety Report 11697261 (Version 1)
Quarter: 2015Q4

REPORT INFORMATION
  Report Type: Spontaneous
  Country: US (occurrence: US)
  Receive Date: 20151104
  Receipt Date: 20151104
  Transmission Date: 20160304
  Serious: Yes (Other)
  Sender: FDA-Public Use
  Company Number: US-ABBVIE-15P-163-1407223-00

PATIENT
  Age: 65 Year
  Sex: Male
  Weight: 133.93 kg

DRUGS (3)
  1. CLONIDINE. [Concomitant]
     Active Substance: CLONIDINE
     Indication: HYPERTENSION
     Dosage: PATCH
     Dates: start: 1995
  2. TEVETEN HCT [Suspect]
     Active Substance: EPROSARTAN MESYLATE\HYDROCHLOROTHIAZIDE
     Indication: HYPERTENSION
     Route: 065
     Dates: end: 20150606
  3. COREG [Concomitant]
     Active Substance: CARVEDILOL
     Indication: HYPERTENSION

REACTIONS (1)
  - Blood pressure increased [Unknown]

NARRATIVE: CASE EVENT DATE: 20150608
